FAERS Safety Report 4531211-2 (Version None)
Quarter: 2004Q4

REPORT INFORMATION
  Report Type: 
  Country: None (occurrence: None)
  Receive Date: 20041216
  Receipt Date: 20041203
  Transmission Date: 20050328
  Serious: Yes (Other)
  Sender: FDA-Public Use
  Company Number: 2004-BP-13204RO

PATIENT
  Age: 67 Year
  Sex: Male

DRUGS (2)
  1. FLUCONAZOLE [Suspect]
     Indication: PNEUMONIA
     Dosage: IV
     Route: 042
  2. PANIPENEM W/BETAMIPROM (PANIPENEM) [Suspect]
     Indication: PNEUMONIA
     Dosage: IV
     Route: 042

REACTIONS (1)
  - PANCREATITIS [None]
